FAERS Safety Report 24728309 (Version 1)
Quarter: 2024Q4

REPORT INFORMATION
  Report Type: Spontaneous
  Country: ES (occurrence: ES)
  Receive Date: 20241212
  Receipt Date: 20241212
  Transmission Date: 20250114
  Serious: Yes (Life-Threatening, Other)
  Sender: FRESENIUS KABI
  Company Number: None

PATIENT
  Age: 70 Year
  Sex: Female

DRUGS (1)
  1. OXALIPLATIN [Suspect]
     Active Substance: OXALIPLATIN
     Indication: Colon cancer
     Dosage: ROA: INTRAVENOUS (NOT OTHERWISE SPECIFIED)
     Dates: start: 20240813, end: 20240813

REACTIONS (2)
  - Anaphylactic shock [Recovered/Resolved with Sequelae]
  - Infusion related reaction [Recovered/Resolved with Sequelae]

NARRATIVE: CASE EVENT DATE: 20240813
